FAERS Safety Report 24964341 (Version 1)
Quarter: 2025Q1

REPORT INFORMATION
  Report Type: Spontaneous
  Country: JP (occurrence: JP)
  Receive Date: 20250213
  Receipt Date: 20250213
  Transmission Date: 20250408
  Serious: Yes (Other)
  Sender: UNICHEM
  Company Number: JP-UNICHEM LABORATORIES LIMITED-UNI-2025-JP-000273

PATIENT

DRUGS (2)
  1. VALSARTAN [Suspect]
     Active Substance: VALSARTAN
     Indication: Cardiac failure
     Route: 065
  2. SACUBITRIL\VALSARTAN [Suspect]
     Active Substance: SACUBITRIL\VALSARTAN
     Indication: Cardiac failure
     Route: 065

REACTIONS (6)
  - Glomerular filtration rate decreased [Unknown]
  - Dialysis [Unknown]
  - Angioedema [Unknown]
  - Hyperkalaemia [Unknown]
  - Adverse event [Unknown]
  - Hypotension [Unknown]
